FAERS Safety Report 4372786-6 (Version None)
Quarter: 2004Q2

REPORT INFORMATION
  Report Type: 
  Country: None (occurrence: None)
  Receive Date: 20040602
  Receipt Date: 20040126
  Transmission Date: 20050107
  Serious: No
  Sender: FDA-Public Use
  Company Number: 200323346BWH

PATIENT
  Age: 65 Year
  Sex: Male

DRUGS (8)
  1. LEVITRA [Suspect]
     Indication: ERECTILE DYSFUNCTION
     Dosage: 10 MG, PRN, ORAL
     Route: 048
     Dates: start: 20030908
  2. LEVITRA [Suspect]
     Indication: ERECTILE DYSFUNCTION
     Dosage: 10 MG, PRN, ORAL
     Route: 048
     Dates: start: 20030910
  3. INSULIN [Concomitant]
  4. ACCUPRIL [Concomitant]
  5. GLUCOPHAGE [Concomitant]
  6. LIPITOR [Concomitant]
  7. ACTOS [Concomitant]
  8. CHILDREN'S ASPIRIN [Concomitant]

REACTIONS (1)
  - ERECTILE DYSFUNCTION [None]
